FAERS Safety Report 6083733-3 (Version None)
Quarter: 2009Q1

REPORT INFORMATION
  Report Type: 
  Country: None (occurrence: None)
  Receive Date: 20090217
  Receipt Date: 20090206
  Transmission Date: 20090719
  Serious: No
  Sender: FDA-Public Use
  Company Number: 20096201

PATIENT
  Sex: Male

DRUGS (1)
  1. LIORESAL [Suspect]
     Indication: MUSCLE SPASTICITY
     Dosage: 121 MCG, DAILY, INTRATHECAL
     Route: 037

REACTIONS (2)
  - CELLULITIS [None]
  - SHUNT INFECTION [None]
